FAERS Safety Report 17795650 (Version 1)
Quarter: 2020Q2

REPORT INFORMATION
  Report Type: Spontaneous
  Country: ES (occurrence: ES)
  Receive Date: 20200516
  Receipt Date: 20200516
  Transmission Date: 20200714
  Serious: Yes (Hospitalization, Other)
  Sender: FDA-Public Use
  Company Number: ES-HETERO-HET2020ES00507

PATIENT
  Age: 82 Year
  Sex: Female

DRUGS (7)
  1. BROMAZEPAM [Suspect]
     Active Substance: BROMAZEPAM
     Indication: BEREAVEMENT
     Dosage: 3 MG, QD
     Route: 065
  2. SIMVASTATIN. [Suspect]
     Active Substance: SIMVASTATIN
     Indication: DYSLIPIDAEMIA
     Dosage: 20 MG, QD AT DINNER
     Route: 065
  3. AMLODIPINE/VALSARTAN [Suspect]
     Active Substance: AMLODIPINE\VALSARTAN
     Indication: HYPERTELORISM OF ORBIT
     Dosage: 5/160 MG  UNK, Q.A.M.
     Route: 065
  4. OMEPRAZOLE. [Suspect]
     Active Substance: OMEPRAZOLE
     Indication: PRODUCT USED FOR UNKNOWN INDICATION
     Dosage: 20 MG, QD
     Route: 065
  5. SERTRALINE [Suspect]
     Active Substance: SERTRALINE HYDROCHLORIDE
     Indication: BEREAVEMENT
     Dosage: 50 MG, QD
     Route: 065
  6. ACETYLSALICYLIC ACID [Suspect]
     Active Substance: ASPIRIN
     Indication: DYSLIPIDAEMIA
     Dosage: 100 MG, QD
     Route: 065
  7. AMLODIPINE [Suspect]
     Active Substance: AMLODIPINE BESYLATE
     Indication: HYPERTELORISM OF ORBIT
     Dosage: 2.5 MG, QD AT DINNER
     Route: 065

REACTIONS (1)
  - Parkinsonism [Recovered/Resolved]
